FAERS Safety Report 5957400-8 (Version None)
Quarter: 2008Q4

REPORT INFORMATION
  Report Type: 
  Country: None (occurrence: None)
  Receive Date: 20081118
  Receipt Date: 20080618
  Transmission Date: 20090506
  Serious: Yes (Other)
  Sender: FDA-Public Use
  Company Number: BR-GENENTECH-271711

PATIENT
  Age: 23 Month
  Sex: Female

DRUGS (4)
  1. PULMOZYME [Suspect]
     Indication: ATELECTASIS
     Dosage: 2.5 MG, 1/WEEK
     Route: 050
     Dates: start: 20080101
  2. SERETIDE [Concomitant]
     Indication: DRUG USE FOR UNKNOWN INDICATION
     Dosage: UNK
  3. FLUTICASONE PROPIONATE [Concomitant]
     Indication: DRUG USE FOR UNKNOWN INDICATION
     Dosage: UNK
  4. AEROLIN [Concomitant]
     Indication: DRUG USE FOR UNKNOWN INDICATION
     Dosage: UNK

REACTIONS (1)
  - BRONCHOSPASM [None]
